FAERS Safety Report 4642453-X (Version None)
Quarter: 2005Q2

REPORT INFORMATION
  Report Type: 
  Country: None (occurrence: None)
  Receive Date: 20050420
  Receipt Date: 20050420
  Transmission Date: 20051028
  Serious: Yes (Life-Threatening)
  Sender: FDA-Public Use
  Company Number: None

PATIENT
  Sex: Female
  Weight: 106.5953 kg

DRUGS (6)
  1. GABAPENTIN [Suspect]
     Indication: DIABETIC NEUROPATHY
     Dosage: 1 TAB DAILY AT BEDTIME
     Dates: start: 20050304, end: 20050315
  2. GABAPENTIN [Suspect]
     Indication: DIABETIC NEUROPATHY
     Dosage: 1 TAB DAILY AT BEDTIME
     Dates: start: 20050322, end: 20050401
  3. ALPRAZOLAM [Concomitant]
  4. HYDROXYZINE [Concomitant]
  5. LOPRESSOR [Concomitant]
  6. TEVETAN [Concomitant]

REACTIONS (12)
  - ANGER [None]
  - BLISTER [None]
  - CRYING [None]
  - HAIR DISORDER [None]
  - HOSTILITY [None]
  - INSOMNIA [None]
  - NEUROPATHIC PAIN [None]
  - PERSONALITY CHANGE [None]
  - PHARMACEUTICAL PRODUCT COMPLAINT [None]
  - RASH PRURITIC [None]
  - SKIN LESION [None]
  - SUICIDAL IDEATION [None]
